FAERS Safety Report 14925637 (Version 1)
Quarter: 2018Q2

REPORT INFORMATION
  Report Type: Spontaneous
  Country: US (occurrence: US)
  Receive Date: 20180522
  Receipt Date: 20180522
  Transmission Date: 20180711
  Serious: No
  Sender: FDA-Public Use
  Company Number: US-AMAG PHARMACEUTICALS, INC.-AMAG201800806

PATIENT

DRUGS (2)
  1. SYNTHROID [Concomitant]
     Active Substance: LEVOTHYROXINE SODIUM
     Indication: THYROID DISORDER
     Dosage: UNK, QD (STARTED 18-20 YEARS AGO)
     Route: 065
  2. INTRAROSA [Suspect]
     Active Substance: PRASTERONE
     Indication: VAGINAL PROLAPSE
     Dosage: 6.5 MG, QD (NIGHTLY)
     Route: 067
     Dates: start: 201802

REACTIONS (2)
  - Palpitations [Not Recovered/Not Resolved]
  - Off label use [Unknown]

NARRATIVE: CASE EVENT DATE: 201802
